FAERS Safety Report 18054979 (Version 1)
Quarter: 2020Q3

REPORT INFORMATION
  Report Type: Spontaneous
  Country: US (occurrence: US)
  Receive Date: 20200722
  Receipt Date: 20200722
  Transmission Date: 20201103
  Serious: Yes (Hospitalization)
  Sender: FDA-Public Use
  Company Number: US-CELGENEUS-USA-20200705138

PATIENT
  Age: 72 Year
  Sex: Female

DRUGS (1)
  1. INREBIC [Suspect]
     Active Substance: FEDRATINIB HYDROCHLORIDE
     Indication: PLASMA CELL MYELOMA
     Route: 048
     Dates: start: 2020

REACTIONS (2)
  - Respiration abnormal [Unknown]
  - Platelet disorder [Unknown]
